FAERS Safety Report 16116392 (Version 1)
Quarter: 2019Q1

REPORT INFORMATION
  Report Type: Spontaneous
  Country: AU (occurrence: AU)
  Receive Date: 20190326
  Receipt Date: 20190326
  Transmission Date: 20190418
  Serious: Yes (Other)
  Sender: FDA-Public Use
  Company Number: AU-ROCHE-2286341

PATIENT
  Age: 48 Year
  Sex: Male

DRUGS (1)
  1. OCRELIZUMAB. [Suspect]
     Active Substance: OCRELIZUMAB
     Indication: RELAPSING-REMITTING MULTIPLE SCLEROSIS
     Route: 065
     Dates: start: 201802

REACTIONS (6)
  - Paranoia [Unknown]
  - Multiple sclerosis relapse [Unknown]
  - Mood altered [Recovered/Resolved]
  - Muscular weakness [Unknown]
  - Sleep disorder [Unknown]
  - Brain injury [Unknown]
